FAERS Safety Report 8974871 (Version 3)
Quarter: 2013Q1

REPORT INFORMATION
  Report Type: Spontaneous
  Country: US (occurrence: None)
  Receive Date: 20121211
  Receipt Date: 20130322
  Transmission Date: 20140127
  Serious: Yes (Disabling, Other)
  Sender: FDA-Public Use
  Company Number: IPC201211-000620

PATIENT
  Age: 84 Year
  Sex: Female
  Weight: 56.24 kg

DRUGS (8)
  1. FUROSEMIDE [Suspect]
     Indication: FLUID RETENTION
     Dosage: 20 MG IN ONE OR TWO DAYS, AS NEEDED.
     Dates: start: 2004, end: 2012
  2. FUROSEMIDE [Suspect]
     Indication: FLUID RETENTION
     Dosage: 20 MG IN ONE OR TWO DAYS, AS NEEDED.
     Dates: start: 2004, end: 2012
  3. TOPROL XL [Concomitant]
     Indication: BLOOD PRESSURE
     Dosage: 50 MG , 3 TIMES A DAY
  4. KLOR CON M [Concomitant]
  5. ASPIRIN [Concomitant]
  6. TOPROL [Concomitant]
  7. FISH OIL [Concomitant]
  8. VITAMIN B COMPLEX [Concomitant]

REACTIONS (15)
  - Choking [None]
  - Retching [None]
  - Cough [None]
  - Dysphagia [None]
  - Cardiac disorder [None]
  - Drug effect decreased [None]
  - Blood cholesterol abnormal [None]
  - Poor peripheral circulation [None]
  - Renal disorder [None]
  - Back pain [None]
  - Feeling abnormal [None]
  - Cerebrovascular accident [None]
  - Drug intolerance [None]
  - Blindness unilateral [None]
  - Local swelling [None]
